FAERS Safety Report 16258374 (Version 1)
Quarter: 2019Q2

REPORT INFORMATION
  Report Type: Spontaneous
  Country: FR (occurrence: FR)
  Receive Date: 20190430
  Receipt Date: 20190430
  Transmission Date: 20190711
  Serious: Yes (Hospitalization)
  Sender: FDA-Public Use
  Company Number: FR-BAUSCH-BL-2019-012910

PATIENT
  Age: 64 Year
  Sex: Female
  Weight: 45 kg

DRUGS (1)
  1. COLOKIT [Suspect]
     Active Substance: SODIUM PHOSPHATE, DIBASIC, ANHYDROUS\SODIUM PHOSPHATE, MONOBASIC, MONOHYDRATE
     Indication: COLONIC LAVAGE
     Route: 048
     Dates: start: 20160605, end: 20160605

REACTIONS (4)
  - Blood creatinine increased [Not Recovered/Not Resolved]
  - Muscle spasms [Not Recovered/Not Resolved]
  - Renal tubular necrosis [Not Recovered/Not Resolved]
  - Renal function test abnormal [Not Recovered/Not Resolved]

NARRATIVE: CASE EVENT DATE: 201608
